FAERS Safety Report 14111554 (Version 2)
Quarter: 2017Q4

REPORT INFORMATION
  Report Type: Spontaneous
  Country: US (occurrence: US)
  Receive Date: 20171020
  Receipt Date: 20171222
  Transmission Date: 20180321
  Serious: Yes (Other)
  Sender: FDA-Public Use
  Company Number: US-BAYER-2017-196084

PATIENT
  Age: 69 Year
  Sex: Female
  Weight: 56.69 kg

DRUGS (10)
  1. ESTRADIOL [ESTRADIOL] [Concomitant]
  2. PERCOCET [Concomitant]
     Active Substance: ACETAMINOPHEN\OXYCODONE HYDROCHLORIDE
  3. VITAMIN D [Concomitant]
     Active Substance: CHOLECALCIFEROL
  4. AMLODIPINE [Concomitant]
     Active Substance: AMLODIPINE BESYLATE
  5. ALEVE TENS DEVICE DIRECT THERAPY UNIT [Suspect]
     Active Substance: DEVICE
     Indication: PAIN
     Dosage: 15-20 SESSIONS DAILY
     Dates: start: 2016
  6. VITAMIN C [Concomitant]
     Active Substance: ASCORBIC ACID
  7. VITAMIN E [Concomitant]
     Active Substance: .ALPHA.-TOCOPHEROL
  8. BAYER ASPIRIN [Suspect]
     Active Substance: ASPIRIN
     Indication: PAIN
     Dosage: UNK
     Route: 048
     Dates: start: 1987
  9. TEMAZEPAM. [Concomitant]
     Active Substance: TEMAZEPAM
  10. FISH OIL [Concomitant]
     Active Substance: FISH OIL

REACTIONS (9)
  - Intentional device misuse [Unknown]
  - Medical device site pruritus [Not Recovered/Not Resolved]
  - Product use complaint [Unknown]
  - Medical device site vesicles [Not Recovered/Not Resolved]
  - Intentional device use issue [Not Recovered/Not Resolved]
  - Device used for unapproved schedule [Unknown]
  - Medical device site dermatitis [Not Recovered/Not Resolved]
  - Intentional device use issue [Unknown]
  - Gastric ulcer [Recovered/Resolved]

NARRATIVE: CASE EVENT DATE: 2016
